FAERS Safety Report 10925942 (Version 1)
Quarter: 2015Q1

REPORT INFORMATION
  Report Type: Report from Study
  Country: US (occurrence: US)
  Receive Date: 20150318
  Receipt Date: 20150318
  Transmission Date: 20150721
  Serious: Yes (Death)
  Sender: FDA-Public Use
  Company Number: US-SA-2015SA033481

PATIENT
  Sex: Female

DRUGS (4)
  1. CARBOPLATIN. [Suspect]
     Active Substance: CARBOPLATIN
     Indication: OVARIAN CANCER
     Dosage: 30 MIN INFUSION
     Route: 042
  2. DEXAMETHASONE. [Concomitant]
     Active Substance: DEXAMETHASONE
     Indication: PREMEDICATION
     Dosage: BEGUN 24 HOURS BEFORE INFUSION OF DOCETAXEL
  3. DOCETAXEL. [Suspect]
     Active Substance: DOCETAXEL
     Indication: OVARIAN CANCER
     Dosage: 1-HOUR INFUSION
     Route: 042
  4. NEULASTA [Concomitant]
     Active Substance: PEGFILGRASTIM
     Dosage: EACH CYCLE OF CHEMOTHERAPY

REACTIONS (1)
  - Colitis [Fatal]
